FAERS Safety Report 21815798 (Version 3)
Quarter: 2024Q1

REPORT INFORMATION
  Report Type: Spontaneous
  Country: DE (occurrence: DE)
  Receive Date: 20230104
  Receipt Date: 20240306
  Transmission Date: 20240410
  Serious: Yes (Other)
  Sender: FDA-Public Use
  Company Number: None

PATIENT
  Age: 1 Day
  Sex: Male
  Weight: 2 kg

DRUGS (1)
  1. SERTRALINE [Suspect]
     Active Substance: SERTRALINE HYDROCHLORIDE
     Indication: Product used for unknown indication
     Dosage: MOTHER DOSE: 100 (MG/D) ONCE A DAY (21-DEC-2020 TO 15-SEP-2021)
     Route: 064

REACTIONS (4)
  - Neonatal respiratory distress [Recovered/Resolved]
  - Small for dates baby [Unknown]
  - Cyanosis neonatal [Recovered/Resolved]
  - Foetal exposure during pregnancy [Unknown]

NARRATIVE: CASE EVENT DATE: 20210901
